FAERS Safety Report 14911748 (Version 1)
Quarter: 2018Q2

REPORT INFORMATION
  Report Type: Spontaneous
  Country: FR (occurrence: FR)
  Receive Date: 20180518
  Receipt Date: 20180518
  Transmission Date: 20180711
  Serious: Yes (Other)
  Sender: FDA-Public Use
  Company Number: FR-MERCK KGAA-2048034

PATIENT
  Age: 68 Year
  Sex: Female

DRUGS (2)
  1. NOVOTHYROX [Suspect]
     Active Substance: LEVOTHYROXINE SODIUM
     Indication: HYPOTHYROIDISM
     Dates: start: 201706
  2. NOVOTHYROX [Suspect]
     Active Substance: LEVOTHYROXINE SODIUM
     Indication: THYROIDITIS
     Dates: start: 201706

REACTIONS (58)
  - Headache [None]
  - Fatigue [None]
  - Fall [None]
  - Balance disorder [None]
  - Cognitive disorder [None]
  - Decreased activity [None]
  - Insomnia [None]
  - Pain in extremity [None]
  - Infection [None]
  - Decreased appetite [None]
  - Social avoidant behaviour [None]
  - Mobility decreased [None]
  - Anxiety [None]
  - Sleep disorder [None]
  - Muscular weakness [None]
  - Diarrhoea [None]
  - Tremor [None]
  - Choking [None]
  - Chest discomfort [None]
  - Pain [None]
  - Crying [None]
  - Malaise [None]
  - Chest pain [None]
  - Confusional state [None]
  - Muscle spasms [None]
  - Alopecia [None]
  - Palpitations [None]
  - Immune system disorder [None]
  - Abdominal pain upper [None]
  - Social fear [None]
  - Impaired driving ability [None]
  - Tinnitus [None]
  - Hypoacusis [None]
  - Feeling cold [None]
  - Aphasia [None]
  - Chills [None]
  - Temperature intolerance [None]
  - Feeling drunk [None]
  - Tendonitis [None]
  - Disturbance in attention [None]
  - Apathy [None]
  - Irritability [None]
  - Vomiting [None]
  - Nightmare [None]
  - Weight increased [None]
  - Nausea [None]
  - Dizziness [None]
  - Arthropathy [None]
  - Vision blurred [None]
  - Abdominal distension [None]
  - Constipation [None]
  - Dyspepsia [None]
  - Dysphagia [None]
  - Amnesia [None]
  - Derealisation [None]
  - Dyspnoea [None]
  - Asthenia [None]
  - Loss of personal independence in daily activities [None]

NARRATIVE: CASE EVENT DATE: 201706
